FAERS Safety Report 13699048 (Version 1)
Quarter: 2017Q2

REPORT INFORMATION
  Report Type: Spontaneous
  Country: FR (occurrence: FR)
  Receive Date: 20170628
  Receipt Date: 20170628
  Transmission Date: 20170830
  Serious: Yes (Hospitalization)
  Sender: FDA-Public Use
  Company Number: FR-PFIZER INC-2017272165

PATIENT
  Age: 62 Year
  Sex: Male

DRUGS (7)
  1. MONAZOL [Concomitant]
     Active Substance: SERTACONAZOLE NITRATE
     Indication: ORAL DISCOMFORT
     Dosage: UNK
     Dates: start: 201701
  2. INNOVAIR [Concomitant]
     Active Substance: BECLOMETHASONE DIPROPIONATE\FORMOTEROL
     Indication: BRONCHITIS
     Dosage: UNK
     Dates: start: 20170103
  3. TRIFLUCAN [Suspect]
     Active Substance: FLUCONAZOLE
     Indication: ORAL CANDIDIASIS
  4. DOLIPRANE [Concomitant]
     Active Substance: ACETAMINOPHEN
     Indication: BRONCHITIS
     Dosage: UNK
     Dates: start: 20170103
  5. TRIFLUCAN [Suspect]
     Active Substance: FLUCONAZOLE
     Indication: ORAL DISCOMFORT
     Dosage: 50 MG, 1X/DAY
     Route: 048
     Dates: start: 20170105, end: 20170108
  6. ZITHROMAX [Suspect]
     Active Substance: AZITHROMYCIN DIHYDRATE
     Indication: BRONCHITIS
     Dosage: UNK
     Route: 048
     Dates: start: 20170103, end: 20170108
  7. MONAZOL [Concomitant]
     Active Substance: SERTACONAZOLE NITRATE
     Indication: ORAL CANDIDIASIS

REACTIONS (3)
  - Thermal burn [Recovered/Resolved]
  - Stomatitis [Recovered/Resolved]
  - Skin exfoliation [Recovered/Resolved]

NARRATIVE: CASE EVENT DATE: 20170108
